FAERS Safety Report 13332331 (Version 5)
Quarter: 2019Q3

REPORT INFORMATION
  Report Type: Report from Study
  Country: IE (occurrence: IE)
  Receive Date: 20170313
  Receipt Date: 20190922
  Transmission Date: 20191004
  Serious: Yes (Hospitalization, Other)
  Sender: FDA-Public Use
  Company Number: IE-CELGENEUS-IRL-2016037283

PATIENT
  Age: 68 Year
  Sex: Female
  Weight: 108.4 kg

DRUGS (10)
  1. REVLIMID [Suspect]
     Active Substance: LENALIDOMIDE
     Indication: PLASMA CELL MYELOMA
     Route: 048
     Dates: start: 20151208, end: 20160320
  2. VIT. B COMPLEX [Concomitant]
     Indication: PROPHYLAXIS
     Route: 048
     Dates: start: 20151209
  3. BORTEZOMIB. [Suspect]
     Active Substance: BORTEZOMIB
     Indication: PLASMA CELL MYELOMA
     Route: 058
     Dates: start: 20151208, end: 20160318
  4. FLUCONAZOLE. [Concomitant]
     Active Substance: FLUCONAZOLE
     Indication: ANTIFUNGAL TREATMENT
     Dosage: 50 MILLIGRAM
     Route: 048
     Dates: start: 20151209
  5. FLUDROCORTISONE [Concomitant]
     Active Substance: FLUDROCORTISONE
     Indication: ORTHOSTATIC HYPERTENSION
     Dosage: 1 MILLIGRAM
     Route: 048
     Dates: start: 20151221
  6. ASPIRIN. [Concomitant]
     Active Substance: ASPIRIN
     Indication: THROMBOSIS PROPHYLAXIS
     Dosage: 75 MILLIGRAM
     Route: 048
     Dates: start: 2005
  7. LANSOPRAZOLE. [Concomitant]
     Active Substance: LANSOPRAZOLE
     Indication: PROPHYLAXIS
     Dosage: 30 MILLIGRAM
     Route: 048
     Dates: start: 20151209
  8. DEXAMETHASONE. [Suspect]
     Active Substance: DEXAMETHASONE
     Indication: PLASMA CELL MYELOMA
     Route: 048
     Dates: start: 20151208, end: 20160318
  9. FAMCICLOVIR. [Concomitant]
     Active Substance: FAMCICLOVIR
     Indication: ANTIVIRAL TREATMENT
     Dosage: 1000 MILLIGRAM
     Route: 048
     Dates: start: 20151209
  10. ALLOPURINOL. [Concomitant]
     Active Substance: ALLOPURINOL
     Indication: PROPHYLAXIS
     Dosage: 100 MILLIGRAM
     Route: 048
     Dates: start: 20151209

REACTIONS (14)
  - Atrial flutter [Recovered/Resolved]
  - Malaise [Recovered/Resolved with Sequelae]
  - H1N1 influenza [Recovered/Resolved with Sequelae]
  - Dyspnoea [Recovered/Resolved with Sequelae]
  - Melaena [Recovered/Resolved with Sequelae]
  - Pyrexia [Recovered/Resolved]
  - Peripheral sensory neuropathy [Not Recovered/Not Resolved]
  - Gastric ulcer [Recovered/Resolved with Sequelae]
  - Cough [Recovered/Resolved]
  - Gastritis [Recovered/Resolved with Sequelae]
  - Acute kidney injury [Recovered/Resolved with Sequelae]
  - Deep vein thrombosis [Not Recovered/Not Resolved]
  - Oropharyngeal pain [Recovered/Resolved]
  - Anaemia [Recovered/Resolved]

NARRATIVE: CASE EVENT DATE: 20160215
